FAERS Safety Report 12841300 (Version 6)
Quarter: 2016Q4

REPORT INFORMATION
  Report Type: Report from Study
  Country: BR (occurrence: BR)
  Receive Date: 20161012
  Receipt Date: 20161221
  Transmission Date: 20170207
  Serious: Yes (Death, Hospitalization, Other)
  Sender: FDA-Public Use
  Company Number: BR-JNJFOC-20161001454

PATIENT
  Age: 49 Year
  Sex: Female
  Weight: 56 kg

DRUGS (3)
  1. METHOTREXATE. [Concomitant]
     Active Substance: METHOTREXATE
     Route: 065
  2. SIMPONI [Suspect]
     Active Substance: GOLIMUMAB
     Indication: RHEUMATOID ARTHRITIS
     Route: 058
     Dates: start: 20160901, end: 20160901
  3. CALCIUM [Concomitant]
     Active Substance: CALCIUM
     Route: 065

REACTIONS (7)
  - Road traffic accident [Unknown]
  - Pulmonary embolism [Fatal]
  - Drug ineffective [Unknown]
  - Femur fracture [Unknown]
  - Urinary tract infection [Recovered/Resolved]
  - Rib fracture [Unknown]
  - Back pain [Recovered/Resolved]

NARRATIVE: CASE EVENT DATE: 20160909
